FAERS Safety Report 7210602-5 (Version None)
Quarter: 2010Q4

REPORT INFORMATION
  Report Type: 
  Country: None (occurrence: None)
  Receive Date: 20101126
  Receipt Date: 20100921
  Transmission Date: 20110411
  Serious: No
  Sender: FDA-Public Use
  Company Number: 315341

PATIENT
  Age: 65 Year
  Sex: Female

DRUGS (3)
  1. VICTOZA [Suspect]
     Indication: PRODUCT USED FOR UNKNOWN INDICATION
     Dosage: 0.6 MG, QD, SUBCUTANEOUS
     Route: 058
  2. METFORMIN (METFORMIN) [Concomitant]
  3. GLYBURIDE (GLIBENCLAMDE) [Concomitant]

REACTIONS (1)
  - OEDEMA PERIPHERAL [None]
